FAERS Safety Report 6402314-2 (Version None)
Quarter: 2009Q4

REPORT INFORMATION
  Report Type: 
  Country: None (occurrence: None)
  Receive Date: 20091015
  Receipt Date: 20091013
  Transmission Date: 20100525
  Serious: Yes (Death)
  Sender: FDA-Public Use
  Company Number: PHEH2009US08061

PATIENT
  Sex: Male

DRUGS (1)
  1. GLEEVEC [Suspect]
     Dosage: 100 MG TABS ALTERNATE 1 TAB QD WITH 2 TABS QD
     Route: 048
     Dates: start: 20070518, end: 20090421

REACTIONS (1)
  - CHRONIC MYELOID LEUKAEMIA [None]
